FAERS Safety Report 7950255-1 (Version None)
Quarter: 2011Q4

REPORT INFORMATION
  Report Type: 
  Country: None (occurrence: None)
  Receive Date: 20111130
  Receipt Date: 20111121
  Transmission Date: 20120403
  Serious: Yes (Other)
  Sender: FDA-Public Use
  Company Number: US-BAYER-201040916NA

PATIENT
  Age: 47 Year
  Sex: Female
  Weight: 65.76 kg

DRUGS (6)
  1. PHENTERMINE [Concomitant]
  2. YASMIN [Suspect]
     Indication: CONTRACEPTION
     Dosage: UNK UNK, UNK
     Route: 048
     Dates: start: 20050401, end: 20080801
  3. DROSPIRENONE AND ETHINYL ESTRADIOL [Suspect]
     Indication: CONTRACEPTION
     Dosage: UNK UNK, UNK
     Route: 048
     Dates: start: 20080801, end: 20090801
  4. PHENTERMINE [Concomitant]
  5. YASMIN [Suspect]
     Indication: ACNE
  6. DROSPIRENONE AND ETHINYL ESTRADIOL [Suspect]
     Indication: ACNE

REACTIONS (4)
  - PAIN [None]
  - MONOPLEGIA [None]
  - HAEMORRHAGIC STROKE [None]
  - MUSCULAR WEAKNESS [None]
